FAERS Safety Report 13002379 (Version 2)
Quarter: 2019Q2

REPORT INFORMATION
  Report Type: Spontaneous
  Country: DE (occurrence: DE)
  Receive Date: 20161206
  Receipt Date: 20190520
  Transmission Date: 20190711
  Serious: Yes (Other)
  Sender: FDA-Public Use
  Company Number: DE-PFIZER INC-2016556726

PATIENT
  Age: 33 Year
  Sex: Female

DRUGS (6)
  1. PROSTAGLANDIN F2 ALPHA [Concomitant]
     Active Substance: DINOPROST
     Indication: ABORTION INDUCED
     Dosage: 10 UG, UNK,INJECTED INTO THE AMNIOTIC SAC
  2. SULPROSTONE [Concomitant]
     Active Substance: SULPROSTONE
     Dosage: 1.5 MG, UNK
     Route: 041
  3. METHOTREXATE SODIUM. [Suspect]
     Active Substance: METHOTREXATE SODIUM
     Indication: ABORTION
     Dosage: 20 MG, UNK
  4. ORNIPRESSIN [Concomitant]
     Dosage: UNK, (2.5 I.E.)
  5. PROSTAGLANDIN F2 ALPHA [Concomitant]
     Active Substance: DINOPROST
     Indication: BLEEDING TIME SHORTENED
     Dosage: 5 MG, UNK
     Route: 041
  6. GEMEPROST [Concomitant]
     Active Substance: GEMEPROST
     Dosage: 1 MG, UNK
     Route: 067

REACTIONS (2)
  - Off label use [Unknown]
  - Drug ineffective for unapproved indication [Recovered/Resolved]
